FAERS Safety Report 11230431 (Version 1)
Quarter: 2015Q2

REPORT INFORMATION
  Report Type: Spontaneous
  Country: PT (occurrence: None)
  Receive Date: 20150629
  Receipt Date: 20150629
  Transmission Date: 20150821
  Serious: Yes (Disabling)
  Sender: FDA-Public Use
  Company Number: PR 11352

PATIENT
  Age: 77 Year
  Sex: Male

DRUGS (1)
  1. ZIOPTAN [Suspect]
     Active Substance: TAFLUPROST
     Indication: OPTIC ATROPHY
     Dates: start: 20150427, end: 2015

REACTIONS (5)
  - Impaired driving ability [None]
  - Activities of daily living impaired [None]
  - Eye degenerative disorder [None]
  - Drug administration error [None]
  - Visual acuity reduced [None]

NARRATIVE: CASE EVENT DATE: 2015
